FAERS Safety Report 11502767 (Version 3)
Quarter: 2015Q4

REPORT INFORMATION
  Report Type: Spontaneous
  Country: US (occurrence: US)
  Receive Date: 20150914
  Receipt Date: 20151130
  Transmission Date: 20160304
  Serious: Yes (Other)
  Sender: FDA-Public Use
  Company Number: US-ASTELLAS-2015US028684

PATIENT
  Age: 90 Year
  Sex: Male

DRUGS (3)
  1. XTANDI [Suspect]
     Active Substance: ENZALUTAMIDE
     Indication: PROSTATE CANCER METASTATIC
  2. XTANDI [Suspect]
     Active Substance: ENZALUTAMIDE
     Indication: BONE CANCER
  3. XTANDI [Suspect]
     Active Substance: ENZALUTAMIDE
     Indication: PROSTATE CANCER
     Dosage: 160 MG (4X40 MG), ONCE DAILY
     Route: 048
     Dates: start: 20150724

REACTIONS (12)
  - Hypersomnia [Unknown]
  - Somnolence [Unknown]
  - Decreased appetite [Recovering/Resolving]
  - Weight increased [Unknown]
  - Fall [Unknown]
  - Joint swelling [Recovered/Resolved]
  - Diarrhoea [Unknown]
  - Laceration [Unknown]
  - Joint swelling [Unknown]
  - Abdominal pain upper [Recovered/Resolved]
  - Musculoskeletal pain [Not Recovered/Not Resolved]
  - Memory impairment [Unknown]

NARRATIVE: CASE EVENT DATE: 201508
